FAERS Safety Report 21660695 (Version 2)
Quarter: 2022Q4

REPORT INFORMATION
  Report Type: Report from Study
  Country: US (occurrence: US)
  Receive Date: 20221130
  Receipt Date: 20221201
  Transmission Date: 20230112
  Serious: Yes (Other)
  Sender: FDA-Public Use
  Company Number: US-ABBVIE-4216762

PATIENT
  Sex: Male
  Weight: 87.543 kg

DRUGS (1)
  1. VENCLEXTA [Suspect]
     Active Substance: VENETOCLAX
     Indication: Acute myeloid leukaemia
     Route: 048
     Dates: start: 20221114

REACTIONS (5)
  - Haemoglobin increased [Unknown]
  - White blood cell count decreased [Unknown]
  - Red blood cell count abnormal [Unknown]
  - Full blood count increased [Unknown]
  - Leukaemia [Not Recovered/Not Resolved]
